FAERS Safety Report 18036310 (Version 1)
Quarter: 2020Q3

REPORT INFORMATION
  Report Type: Spontaneous
  Country: US (occurrence: US)
  Receive Date: 20200717
  Receipt Date: 20200717
  Transmission Date: 20201103
  Serious: No
  Sender: FDA-Public Use
  Company Number: US-BIOGEN-2020BI00898471

PATIENT
  Sex: Female

DRUGS (18)
  1. AVONEX [Suspect]
     Active Substance: INTERFERON BETA-1A
  2. AVONEX [Suspect]
     Active Substance: INTERFERON BETA-1A
     Indication: MULTIPLE SCLEROSIS
     Dosage: INJECT 30 MCG INTRAMUSCULARLY ONCE WEEKLY
     Route: 030
     Dates: start: 201911
  3. CALCITRIOL. [Concomitant]
     Active Substance: CALCITRIOL
     Route: 065
  4. AVONEX [Suspect]
     Active Substance: INTERFERON BETA-1A
  5. AVONEX [Suspect]
     Active Substance: INTERFERON BETA-1A
  6. AVONEX [Suspect]
     Active Substance: INTERFERON BETA-1A
  7. ALLOPURINOL. [Concomitant]
     Active Substance: ALLOPURINOL
     Route: 065
  8. AVONEX [Suspect]
     Active Substance: INTERFERON BETA-1A
  9. AVONEX [Suspect]
     Active Substance: INTERFERON BETA-1A
  10. AVONEX [Suspect]
     Active Substance: INTERFERON BETA-1A
  11. AVONEX [Suspect]
     Active Substance: INTERFERON BETA-1A
  12. AVONEX [Suspect]
     Active Substance: INTERFERON BETA-1A
  13. AVONEX [Suspect]
     Active Substance: INTERFERON BETA-1A
  14. ASPIRIN 81 [Concomitant]
     Active Substance: ASPIRIN
     Route: 065
  15. AVONEX [Suspect]
     Active Substance: INTERFERON BETA-1A
  16. LISINOPRIL. [Concomitant]
     Active Substance: LISINOPRIL
     Route: 065
  17. AVONEX [Suspect]
     Active Substance: INTERFERON BETA-1A
  18. TEMAZEPAM. [Concomitant]
     Active Substance: TEMAZEPAM
     Route: 065

REACTIONS (3)
  - Vertigo [Unknown]
  - Swelling [Unknown]
  - Thermal burn [Unknown]
